FAERS Safety Report 21794995 (Version 5)
Quarter: 2023Q1

REPORT INFORMATION
  Report Type: Report from Study
  Country: CN (occurrence: None)
  Receive Date: 20221229
  Receipt Date: 20230329
  Transmission Date: 20230417
  Serious: Yes (Hospitalization)
  Sender: FDA-Public Use
  Company Number: CN-ROCHE-3250058

PATIENT
  Age: 34 Year
  Sex: Female
  Weight: 65 kg

DRUGS (19)
  1. SATRALIZUMAB [Suspect]
     Active Substance: SATRALIZUMAB
     Indication: Myasthenia gravis
     Dosage: START DATE OF MOST RECENT DOSE OF STUDY DRUG PRIOR TO AE/SAE: 09/DEC/2022 AT 10.00 AM
     Route: 058
     Dates: start: 20220811
  2. CALCIUM CARBONATE AND VITAMIN D3 TABLETS (II) [Concomitant]
     Route: 048
     Dates: start: 202105
  3. TACROLIMUS [Concomitant]
     Active Substance: TACROLIMUS
     Indication: Myasthenia gravis
     Route: 048
     Dates: start: 20211224
  4. TACROLIMUS [Concomitant]
     Active Substance: TACROLIMUS
     Route: 048
     Dates: start: 20211224
  5. PYRIDOSTIGMINE BROMIDE [Concomitant]
     Active Substance: PYRIDOSTIGMINE BROMIDE
     Indication: Myasthenia gravis
     Route: 048
     Dates: start: 20210505
  6. PREDNISONE ACETATE [Concomitant]
     Active Substance: PREDNISONE ACETATE
     Indication: Myasthenia gravis
     Route: 048
     Dates: start: 20210824
  7. OXYGEN [Concomitant]
     Active Substance: OXYGEN
     Dosage: {=6 L/MIN
  8. IBUPROFEN [Concomitant]
     Active Substance: IBUPROFEN
     Indication: Pyrexia
     Route: 048
     Dates: start: 20221219, end: 20221219
  9. GANCICLOVIR [Concomitant]
     Active Substance: GANCICLOVIR
     Route: 042
     Dates: start: 20221220, end: 20221221
  10. CEFOPERAZONE SODIUM\SULBACTAM SODIUM [Concomitant]
     Active Substance: CEFOPERAZONE SODIUM\SULBACTAM SODIUM
     Route: 042
     Dates: start: 20221221, end: 20221221
  11. CEFOPERAZONE SODIUM\SULBACTAM SODIUM [Concomitant]
     Active Substance: CEFOPERAZONE SODIUM\SULBACTAM SODIUM
     Route: 042
     Dates: start: 20221222, end: 20221229
  12. AMBROXOL HYDROCHLORIDE [Concomitant]
     Active Substance: AMBROXOL HYDROCHLORIDE
     Indication: Productive cough
     Route: 042
     Dates: start: 20221221, end: 20221221
  13. AMBROXOL HYDROCHLORIDE [Concomitant]
     Active Substance: AMBROXOL HYDROCHLORIDE
     Route: 042
     Dates: start: 20221222, end: 20221222
  14. ATROPINE SULFATE [Concomitant]
     Active Substance: ATROPINE SULFATE
     Route: 050
     Dates: start: 20221221, end: 20221227
  15. NEOSTIGMINE METHYLSULFATE [Concomitant]
     Active Substance: NEOSTIGMINE METHYLSULFATE
     Route: 050
     Dates: start: 20221221, end: 20221227
  16. NALOXONE HYDROCHLORIDE [Concomitant]
     Active Substance: NALOXONE HYDROCHLORIDE
     Route: 042
     Dates: start: 20221221, end: 20221221
  17. INSULIN HUMAN [Concomitant]
     Active Substance: INSULIN HUMAN
     Route: 042
     Dates: start: 20221222, end: 20221229
  18. HUMAN IMMUNOGLOBULIN G [Concomitant]
     Active Substance: HUMAN IMMUNOGLOBULIN G
     Route: 042
     Dates: start: 20221222, end: 20221226
  19. PANTOPRAZOLE SODIUM [Concomitant]
     Active Substance: PANTOPRAZOLE SODIUM
     Route: 048
     Dates: start: 20221228, end: 20221229

REACTIONS (1)
  - Coronavirus infection [Recovered/Resolved]

NARRATIVE: CASE EVENT DATE: 20221219
